FAERS Safety Report 6588721-6 (Version None)
Quarter: 2010Q1

REPORT INFORMATION
  Report Type: 
  Country: None (occurrence: None)
  Receive Date: 20100202
  Receipt Date: 20100114
  Transmission Date: 20100710
  Serious: No
  Sender: FDA-Public Use
  Company Number: 2010-00044

PATIENT
  Age: 75 Year
  Sex: Male
  Weight: 81.6475 kg

DRUGS (15)
  1. ZICAM COLD REMEDY CHEWABLES [Suspect]
     Dosage: QD - 1 DAY - 1 DOSE
     Dates: start: 20100113, end: 20100113
  2. AVAPRO [Concomitant]
  3. TOPROL-XL [Concomitant]
  4. ZOCOR [Concomitant]
  5. PROSCAR [Concomitant]
  6. PREVACID [Concomitant]
  7. REGLAN [Concomitant]
  8. CLARITIN [Concomitant]
  9. ATROVENT [Concomitant]
  10. ATIVAN [Concomitant]
  11. BABY ASPIRIN [Concomitant]
  12. VITAMIN C + E [Concomitant]
  13. CALTRATE WITH VITAMIN D [Concomitant]
  14. FISH OIL [Concomitant]
  15. CENTRUM MULTIVITAMIN [Concomitant]

REACTIONS (1)
  - AGEUSIA [None]
